FAERS Safety Report 14952578 (Version 4)
Quarter: 2019Q1

REPORT INFORMATION
  Report Type: Spontaneous
  Country: US (occurrence: US)
  Receive Date: 20180530
  Receipt Date: 20190314
  Transmission Date: 20190417
  Serious: No
  Sender: FDA-Public Use
  Company Number: US-PFIZER INC-2017111355

PATIENT
  Age: 66 Year
  Sex: Female
  Weight: 70 kg

DRUGS (15)
  1. IBRANCE [Suspect]
     Active Substance: PALBOCICLIB
     Dosage: 75 MG, CYCLIC (ONE 75MG CAPSULE EVERY DAY BY MOUTH FOR 21 DAY AND WEEK OFF)
     Route: 048
  2. NORCO [Concomitant]
     Active Substance: ACETAMINOPHEN\HYDROCODONE BITARTRATE
     Indication: BREAST CANCER FEMALE
  3. IBRANCE [Suspect]
     Active Substance: PALBOCICLIB
     Indication: BREAST CANCER METASTATIC
     Dosage: 100 MG, CYCLIC (DAILY WITH FOOD FOR 21 DAYS, 1 WEEK OFF)
     Route: 048
  4. IBRANCE [Suspect]
     Active Substance: PALBOCICLIB
     Dosage: 125 MG, UNK
  5. COLACE [Concomitant]
     Active Substance: DOCUSATE SODIUM
     Indication: CONSTIPATION
  6. VALIUM [Concomitant]
     Active Substance: DIAZEPAM
     Indication: BASAL CELL CARCINOMA
     Dosage: 5 MG, UNK (TAKE 1 PO Q2 HOURS BEFORE SURGERY)
     Route: 048
  7. ARISTOCORT A [Concomitant]
     Indication: DERMATITIS
     Dosage: 0.025 %, AS NEEDED (1 APPLICATION TO AFFECTED AREA(S) TWICE DAILY)
  8. NEURONTIN [Concomitant]
     Active Substance: GABAPENTIN
     Indication: MYOFASCIAL PAIN SYNDROME
     Dosage: 200 MG, 3X/DAY
     Route: 048
     Dates: start: 2012, end: 2017
  9. NORCO [Concomitant]
     Active Substance: ACETAMINOPHEN\HYDROCODONE BITARTRATE
     Indication: PAIN
     Dosage: UNK, AS NEEDED [(HYDROCODONE BITARTRATE: 5 MG)/ (PARACETAMOL: 325 MG), TAKE 1 TAB EVERY 8 HRS]
     Route: 048
  10. FEMARA [Concomitant]
     Active Substance: LETROZOLE
     Indication: BREAST CANCER FEMALE
     Dosage: 2.5 MG, DAILY
     Route: 048
     Dates: end: 201809
  11. NORCO [Concomitant]
     Active Substance: ACETAMINOPHEN\HYDROCODONE BITARTRATE
     Indication: BACK PAIN
  12. DIPHENHYDRAMINE HCL W/LIDOCAINE/NYSTATIN [Concomitant]
     Active Substance: DIPHENHYDRAMINE\LIDOCAINE\NYSTATIN
     Indication: BREAST CANCER FEMALE
     Dosage: 15 ML, AS NEEDED (SWISH THEN SPIT FOUR TIMES DAILY AS NEEDED)
     Route: 048
  13. ATIVAN [Concomitant]
     Active Substance: LORAZEPAM
     Indication: BREAST CANCER FEMALE
     Dosage: 0.5 MG, AS NEEDED (AS DIRECTED/CAN TAKE 1TAB 60MIN BEFORE PROCEDURE CAN REPEAT ANOTHER TAB IN 30MIN)
     Route: 048
  14. LETROZOLE. [Suspect]
     Active Substance: LETROZOLE
     Dosage: UNK
     Dates: end: 201809
  15. COLACE [Concomitant]
     Active Substance: DOCUSATE SODIUM
     Indication: BREAST CANCER FEMALE
     Dosage: 50 MG, DAILY (TAKE 1 CAP DAILY HOLD FOR LOOSE STOOLS)
     Route: 048

REACTIONS (4)
  - Product administration error [Unknown]
  - Full blood count abnormal [Unknown]
  - Neoplasm progression [Unknown]
  - Product storage error [Unknown]
